FAERS Safety Report 9106159 (Version 1)
Quarter: 2013Q1

REPORT INFORMATION
  Report Type: Spontaneous
  Country: US (occurrence: US)
  Receive Date: 20130221
  Receipt Date: 20130221
  Transmission Date: 20140127
  Serious: Yes (Death, Hospitalization)
  Sender: FDA-Public Use
  Company Number: US-OTSUKA-US-2013-10030

PATIENT
  Age: 90 Year
  Sex: Male

DRUGS (3)
  1. SAMSCA [Suspect]
     Indication: PRODUCT USED FOR UNKNOWN INDICATION
     Dosage: 15 MG MILLIGRAM(S), UNK
  2. SAMSCA [Suspect]
     Dosage: 30 MG MILLIGRAM(S), UNK
  3. SAMSCA [Suspect]
     Dosage: 60 MG MILLIGRAM(S), UNK

REACTIONS (6)
  - Hyponatraemia [Fatal]
  - Oedema [Fatal]
  - Ascites [Fatal]
  - Pneumonia aspiration [Fatal]
  - Lactic acidosis [Fatal]
  - Sepsis [Fatal]
